FAERS Safety Report 15474353 (Version 2)
Quarter: 2018Q4

REPORT INFORMATION
  Report Type: Spontaneous
  Country: US (occurrence: US)
  Receive Date: 20181008
  Receipt Date: 20181017
  Transmission Date: 20190205
  Serious: No
  Sender: FDA-Public Use
  Company Number: US-AMGEN-USASP2018131178

PATIENT
  Age: 72 Year
  Sex: Female

DRUGS (1)
  1. PROLIA [Suspect]
     Active Substance: DENOSUMAB
     Indication: OSTEOPOROSIS POSTMENOPAUSAL
     Dosage: UNK
     Route: 065
     Dates: start: 2017

REACTIONS (11)
  - Weight decreased [Unknown]
  - Bone pain [Recovering/Resolving]
  - Insomnia [Unknown]
  - Musculoskeletal pain [Unknown]
  - Myalgia [Recovering/Resolving]
  - Neck pain [Unknown]
  - Decreased appetite [Unknown]
  - Hepatic enzyme increased [Recovered/Resolved]
  - Headache [Unknown]
  - Arthralgia [Unknown]
  - Back pain [Unknown]

NARRATIVE: CASE EVENT DATE: 2018
